FAERS Safety Report 5223493-9 (Version None)
Quarter: 2007Q1

REPORT INFORMATION
  Report Type: 
  Country: None (occurrence: None)
  Receive Date: 20070125
  Receipt Date: 20070116
  Transmission Date: 20070707
  Serious: Yes (Death, Hospitalization)
  Sender: FDA-Public Use
  Company Number: 232897

PATIENT
  Age: 77 Year
  Sex: Male
  Weight: 77.6 kg

DRUGS (11)
  1. AVASTIN [Suspect]
     Indication: NON-SMALL CELL LUNG CANCER
     Dosage: 15 MG/KG, Q3W, INTRAVENOUS
     Route: 042
     Dates: start: 20061113, end: 20061113
  2. PACLITAXEL [Suspect]
     Indication: NON-SMALL CELL LUNG CANCER
     Dosage: 200 MG/M2, Q3W, INTRAVENOUS
     Route: 042
     Dates: start: 20061113, end: 20061113
  3. CARBOPLATIN [Suspect]
     Indication: NON-SMALL CELL LUNG CANCER
     Dosage: 6 AUC, Q3W, INTRAVENOUS
     Route: 042
     Dates: start: 20061113, end: 20061113
  4. VYTORIN [Concomitant]
  5. MEDROL [Concomitant]
  6. NASACORT (TRAIAMCINOLONE ACETONIDE) [Concomitant]
  7. VITAMIN D (CHOLECALCIFEROL) [Concomitant]
  8. ZYRTEC [Concomitant]
  9. ASPIRIN [Concomitant]
  10. RAMIPRIL [Concomitant]
  11. HEXAVITAMINS (HEXAVITAMIN) [Concomitant]

REACTIONS (24)
  - ASTHENIA [None]
  - BLOOD BICARBONATE DECREASED [None]
  - BLOOD CREATINE PHOSPHOKINASE INCREASED [None]
  - BLOOD CREATININE INCREASED [None]
  - BLOOD LACTIC ACID INCREASED [None]
  - BLOOD PH DECREASED [None]
  - BLOOD UREA INCREASED [None]
  - FATIGUE [None]
  - HAEMATOCRIT DECREASED [None]
  - HAEMOGLOBIN DECREASED [None]
  - HYPOTENSION [None]
  - LUNG INFILTRATION [None]
  - MENTAL STATUS CHANGES [None]
  - MYOGLOBIN BLOOD INCREASED [None]
  - NEUTROPHIL COUNT DECREASED [None]
  - OXYGEN SATURATION DECREASED [None]
  - PCO2 INCREASED [None]
  - PLATELET COUNT DECREASED [None]
  - PLEURAL EFFUSION [None]
  - PO2 DECREASED [None]
  - PULMONARY EMBOLISM [None]
  - SEPSIS [None]
  - TROPONIN INCREASED [None]
  - WHITE BLOOD CELL COUNT DECREASED [None]
